FAERS Safety Report 24258370 (Version 1)
Quarter: 2024Q3

REPORT INFORMATION
  Report Type: Spontaneous
  Country: US (occurrence: US)
  Receive Date: 20240828
  Receipt Date: 20240828
  Transmission Date: 20241016
  Serious: Yes (Other)
  Sender: GLAND PHARMA
  Company Number: US-GLANDPHARMA-US-2024GLNSPO00683

PATIENT
  Sex: Male

DRUGS (1)
  1. OXALIPLATIN [Suspect]
     Active Substance: OXALIPLATIN
     Indication: Chemotherapy
     Route: 065

REACTIONS (2)
  - Neuropathy peripheral [Unknown]
  - Skin discolouration [Unknown]
